FAERS Safety Report 5509902-6 (Version None)
Quarter: 2007Q4

REPORT INFORMATION
  Report Type: 
  Country: None (occurrence: None)
  Receive Date: 20071107
  Receipt Date: 20071107
  Transmission Date: 20080405
  Serious: Yes (Life-Threatening, Hospitalization)
  Sender: FDA-Public Use
  Company Number: None

PATIENT
  Sex: Male
  Weight: 32.2054 kg

DRUGS (1)
  1. ADDERALL 10 [Suspect]
     Indication: ANXIETY
     Dosage: 1 TAB DAILY PO
     Route: 048
     Dates: start: 20070613, end: 20070624

REACTIONS (1)
  - GRAND MAL CONVULSION [None]
